FAERS Safety Report 18855051 (Version 2)
Quarter: 2021Q1

REPORT INFORMATION
  Report Type: Spontaneous
  Country: US (occurrence: US)
  Receive Date: 20210205
  Receipt Date: 20210212
  Transmission Date: 20210420
  Serious: Yes (Hospitalization)
  Sender: FDA-Public Use
  Company Number: US-TEVA-2021-US-1874729

PATIENT
  Age: 65 Year
  Sex: Male

DRUGS (2)
  1. COPAXONE [Suspect]
     Active Substance: GLATIRAMER ACETATE
     Indication: MULTIPLE SCLEROSIS
     Dosage: 20 MILLIGRAM DAILY;
     Route: 058
     Dates: start: 20200123
  2. COPAXONE [Suspect]
     Active Substance: GLATIRAMER ACETATE
     Dosage: 20 MILLIGRAM DAILY;
     Route: 058
     Dates: start: 20200124

REACTIONS (4)
  - Pneumonia [Not Recovered/Not Resolved]
  - Fatigue [Not Recovered/Not Resolved]
  - Limb mass [Not Recovered/Not Resolved]
  - Pneumothorax [Not Recovered/Not Resolved]

NARRATIVE: CASE EVENT DATE: 20201202
